FAERS Safety Report 5139928-6 (Version None)
Quarter: 2006Q4

REPORT INFORMATION
  Report Type: 
  Country: None (occurrence: None)
  Receive Date: 20061031
  Receipt Date: 20060906
  Transmission Date: 20070319
  Serious: Yes (Other)
  Sender: FDA-Public Use
  Company Number: JP-ELI_LILLY_AND_COMPANY-JP200609001640

PATIENT
  Age: 33 Year
  Sex: Female

DRUGS (2)
  1. ZYPREXA [Suspect]
     Indication: SCHIZOPHRENIA
     Dosage: 5 MG, DAILY (1/D)
     Route: 048
     Dates: start: 20011015
  2. BENZALIN [Concomitant]
     Indication: SCHIZOPHRENIA
     Dosage: 5 MG, AS NEEDED
     Route: 048
     Dates: start: 20031114

REACTIONS (3)
  - BONE MARROW FAILURE [None]
  - NEUTROPHIL COUNT DECREASED [None]
  - WHITE BLOOD CELL COUNT DECREASED [None]
